FAERS Safety Report 16819455 (Version 1)
Quarter: 2019Q3

REPORT INFORMATION
  Report Type: Spontaneous
  Country: US (occurrence: US)
  Receive Date: 20190917
  Receipt Date: 20190917
  Transmission Date: 20191005
  Serious: No
  Sender: FDA-Public Use
  Company Number: US-TEVA-2019-US-1108020

PATIENT
  Sex: Female

DRUGS (1)
  1. BUPRENORPHINE TRANSDERMAL SYSTEM [Suspect]
     Active Substance: BUPRENORPHINE
     Dosage: FORM STRENGTH: 5 MCG/HR
     Route: 062

REACTIONS (4)
  - Application site irritation [Unknown]
  - Product adhesion issue [Unknown]
  - Treatment failure [Unknown]
  - Product quality issue [Unknown]
